FAERS Safety Report 5164017-4 (Version None)
Quarter: 2006Q4

REPORT INFORMATION
  Report Type: 
  Country: None (occurrence: None)
  Receive Date: 20061204
  Receipt Date: 20010216
  Transmission Date: 20070319
  Serious: Yes (Hospitalization)
  Sender: FDA-Public Use
  Company Number: FR-BOEHRINGER INGELHEIM PHARMACEUTICALS, INC.-2001-FF-S0097

PATIENT
  Sex: Male
  Weight: 1.9 kg

DRUGS (8)
  1. VIRAMUNE [Suspect]
     Indication: HUMAN IMMUNODEFICIENCY VIRUS TRANSMISSION
     Route: 048
     Dates: start: 19991019, end: 19991019
  2. VIRAMUNE [Suspect]
     Indication: HIV INFECTION
     Route: 064
     Dates: end: 19991017
  3. CLAMOXYL [Concomitant]
     Route: 064
  4. VIDEX [Concomitant]
     Indication: HIV INFECTION
     Route: 064
     Dates: end: 19991017
  5. SAQUINAVIR [Concomitant]
     Indication: HIV INFECTION
     Route: 064
     Dates: end: 19991017
  6. RITONAVIR [Concomitant]
     Indication: HIV INFECTION
     Route: 064
     Dates: end: 19991017
  7. RETROVIR [Concomitant]
     Indication: HUMAN IMMUNODEFICIENCY VIRUS TRANSMISSION
     Route: 042
     Dates: start: 19991017, end: 19991023
  8. RETROVIR [Concomitant]
     Route: 048
     Dates: start: 19991024, end: 19991101

REACTIONS (3)
  - ANAEMIA [None]
  - DRUG EXPOSURE DURING PREGNANCY [None]
  - SICKLE CELL ANAEMIA [None]
